FAERS Safety Report 11755264 (Version 2)
Quarter: 2016Q2

REPORT INFORMATION
  Report Type: Report from Study
  Country: US (occurrence: US)
  Receive Date: 20151119
  Receipt Date: 20160510
  Transmission Date: 20160815
  Serious: Yes (Other)
  Sender: FDA-Public Use
  Company Number: US-MDT-ADR-2015-02196

PATIENT
  Age: 64 Year
  Sex: Female

DRUGS (2)
  1. BACLOFEN. [Suspect]
     Active Substance: BACLOFEN
     Dosage: 399.7 MCG/DAY
     Route: 037
     Dates: start: 20150806
  2. FENTANYL. [Suspect]
     Active Substance: FENTANYL
     Dosage: 24.98 MCG/DAY
     Route: 037
     Dates: start: 20150806

REACTIONS (2)
  - Therapeutic response decreased [Unknown]
  - Infusion site mass [Unknown]

NARRATIVE: CASE EVENT DATE: 2015
